FAERS Safety Report 6928892-2 (Version None)
Quarter: 2010Q3

REPORT INFORMATION
  Report Type: 
  Country: None (occurrence: None)
  Receive Date: 20100817
  Receipt Date: 20100802
  Transmission Date: 20110219
  Serious: No
  Sender: FDA-Public Use
  Company Number: US-B.I. PHARMACEUTICALS,INC./RIDGEFIELD-2010-BP-07649BP

PATIENT
  Sex: Male

DRUGS (6)
  1. FLOMAX [Suspect]
     Indication: POLLAKIURIA
     Dosage: 0.4 MG
  2. SIMVASTATIN [Concomitant]
     Dosage: 20 MG
  3. AMLODIPINE [Concomitant]
     Dosage: 5 MG
  4. LISINOPRIL [Concomitant]
     Dosage: 10 MG
  5. GLIPIZIDE [Concomitant]
     Dosage: 5 MG
  6. GEMFIBROZIL [Concomitant]
     Dosage: 600 MG

REACTIONS (2)
  - DRUG INEFFECTIVE [None]
  - NOCTURIA [None]
